FAERS Safety Report 6239684-4 (Version None)
Quarter: 2009Q2

REPORT INFORMATION
  Report Type: 
  Country: None (occurrence: None)
  Receive Date: 20090619
  Receipt Date: 20090610
  Transmission Date: 20091009
  Serious: Yes (Hospitalization)
  Sender: FDA-Public Use
  Company Number: GXKR2009CH06743

PATIENT
  Age: 80 Year
  Sex: Female

DRUGS (7)
  1. LEVETIRACETAM [Suspect]
     Indication: GRAND MAL CONVULSION
     Dosage: 1000 MG, BID, 250 MG, BID
  2. VERAPAMIL [Concomitant]
  3. PROPRANOLOL [Concomitant]
  4. METFORMIN HCL [Concomitant]
  5. OXAZEPAM [Concomitant]
  6. ESCITALOPRAM [Concomitant]
  7. LEVODOPA W/BENSERAZIDE/ (BENSERAZIDE, LEVODOPA), 25/100 MG [Concomitant]

REACTIONS (2)
  - ANTICONVULSANT DRUG LEVEL ABOVE THERAPEUTIC [None]
  - LEUKOENCEPHALOPATHY [None]
